FAERS Safety Report 21422400 (Version 1)
Quarter: 2022Q4

REPORT INFORMATION
  Report Type: Spontaneous
  Country: US (occurrence: None)
  Receive Date: 20221006
  Receipt Date: 20221006
  Transmission Date: 20230113
  Serious: Yes (Hospitalization, Other)
  Sender: FDA-Public Use
  Company Number: None

PATIENT
  Age: 56 Year
  Sex: Female
  Weight: 45 kg

DRUGS (7)
  1. FAMOTIDINE [Suspect]
     Active Substance: FAMOTIDINE
     Indication: Gastrooesophageal reflux disease
     Dosage: FREQUENCY : TWICE A DAY;?
     Route: 048
     Dates: end: 20220820
  2. PROGESTERONE [Concomitant]
     Active Substance: PROGESTERONE
  3. estradial [Concomitant]
  4. VITAMIN D NOS [Concomitant]
     Active Substance: VITAMIN D NOS
  5. CALCIUM [Concomitant]
     Active Substance: CALCIUM
  6. vital protiens [Concomitant]
  7. PROBIOTICS NOS [Concomitant]
     Active Substance: PROBIOTICS NOS

REACTIONS (18)
  - Pain in extremity [None]
  - Pain in extremity [None]
  - Arthralgia [None]
  - Pelvic pain [None]
  - Abdominal pain [None]
  - Muscle spasms [None]
  - Arthralgia [None]
  - Tendon pain [None]
  - Muscular weakness [None]
  - Gait inability [None]
  - Bone pain [None]
  - Insomnia [None]
  - Anxiety [None]
  - Weight decreased [None]
  - Erythema [None]
  - Plantar fasciitis [None]
  - Abdominal pain upper [None]
  - Malabsorption [None]

NARRATIVE: CASE EVENT DATE: 20170917
